FAERS Safety Report 7053929-2 (Version None)
Quarter: 2010Q4

REPORT INFORMATION
  Report Type: 
  Country: None (occurrence: None)
  Receive Date: 20101020
  Receipt Date: 20101014
  Transmission Date: 20110411
  Serious: Yes (Other)
  Sender: FDA-Public Use
  Company Number: JP-ABBOTT-10P-087-0679001-00

PATIENT
  Age: 62 Year
  Sex: Male
  Weight: 60 kg

DRUGS (1)
  1. SEVOFLURANE [Suspect]
     Indication: INDUCTION OF ANAESTHESIA

REACTIONS (3)
  - ARTERIOSPASM CORONARY [None]
  - HYPOTENSION [None]
  - VENTRICULAR FIBRILLATION [None]
